FAERS Safety Report 8495801-7 (Version None)
Quarter: 2012Q2

REPORT INFORMATION
  Report Type: 
  Country: None (occurrence: None)
  Receive Date: 20120402
  Receipt Date: 20100504
  Transmission Date: 20120825
  Serious: Yes (Other)
  Sender: FDA-Public Use
  Company Number: PHEH2010US03001

PATIENT
  Age: 76 Year
  Sex: Male

DRUGS (1)
  1. EXFORGE HCT [Suspect]
     Indication: HYPERTENSION
     Dosage: 160/5/12.5 MG, ORAL
     Route: 048
     Dates: start: 20100503, end: 20100503

REACTIONS (1)
  - PARAESTHESIA ORAL [None]
